FAERS Safety Report 7591434-5 (Version None)
Quarter: 2011Q3

REPORT INFORMATION
  Report Type: 
  Country: None (occurrence: None)
  Receive Date: 20110701
  Receipt Date: 20110701
  Transmission Date: 20111222
  Serious: No
  Sender: FDA-Public Use
  Company Number: None

PATIENT
  Age: 63 Year
  Sex: Male
  Weight: 93 kg

DRUGS (2)
  1. TECHNETIUM TC-99M MEBROFENIN [Suspect]
     Indication: GALLBLADDER DISORDER
     Dosage: RADIOPHARM 5.5 MILLICI 1 INTRAVENOUS (IV) 042
     Route: 042
     Dates: start: 20110606, end: 20110613
  2. TECHNETIUM TC-99M MEBROFENIN [Suspect]
     Indication: LIVER FUNCTION TEST ABNORMAL
     Dosage: RADIOPHARM 5.5 MILLICI 1 INTRAVENOUS (IV) 042
     Route: 042
     Dates: start: 20110606, end: 20110613

REACTIONS (1)
  - PRODUCT QUALITY ISSUE [None]
